FAERS Safety Report 5088940-4 (Version None)
Quarter: 2006Q3

REPORT INFORMATION
  Report Type: 
  Country: None (occurrence: None)
  Receive Date: 20060824
  Receipt Date: 20060824
  Transmission Date: 20061208
  Serious: No
  Sender: FDA-Public Use
  Company Number: None

PATIENT
  Age: 40 Year
  Sex: Female
  Weight: 62.5964 kg

DRUGS (2)
  1. ESTRATEST [Suspect]
     Indication: MENOPAUSAL SYMPTOMS
     Dosage: 1 DAY PO
     Route: 048
     Dates: start: 20060301, end: 20060823
  2. PREMARIN [Concomitant]

REACTIONS (2)
  - DRUG INEFFECTIVE [None]
  - POOR QUALITY DRUG ADMINISTERED [None]
